FAERS Safety Report 4409854-6 (Version None)
Quarter: 2004Q3

REPORT INFORMATION
  Report Type: 
  Country: None (occurrence: None)
  Receive Date: 20040727
  Receipt Date: 20040714
  Transmission Date: 20050211
  Serious: Yes (Other)
  Sender: FDA-Public Use
  Company Number: 8467

PATIENT
  Age: 11 Month
  Sex: Male
  Weight: 4.09 kg

DRUGS (2)
  1. PAMIDRONATE DISODIUM [Suspect]
     Indication: OSTEOGENESIS IMPERFECTA
     Dosage: 0.125 MG/KG ONCE; IV
     Route: 042
  2. PAMIDRONATE DISODIUM [Suspect]
     Indication: OSTEOGENESIS IMPERFECTA
     Dosage: 0.25 MG/KG ONCE; IV
     Route: 042

REACTIONS (5)
  - BODY TEMPERATURE INCREASED [None]
  - CHEST X-RAY ABNORMAL [None]
  - HEART RATE INCREASED [None]
  - RESPIRATORY DISTRESS [None]
  - RIB FRACTURE [None]
